FAERS Safety Report 7703430-5 (Version None)
Quarter: 2011Q3

REPORT INFORMATION
  Report Type: 
  Country: None (occurrence: None)
  Receive Date: 20110823
  Receipt Date: 20110823
  Transmission Date: 20111222
  Serious: Yes (Hospitalization)
  Sender: FDA-Public Use
  Company Number: None

PATIENT
  Age: 17 Month
  Sex: Male
  Weight: 12.56 kg

DRUGS (2)
  1. ACETAMINOPHEN -GOOD SENSE [Concomitant]
     Route: 048
  2. AUGMENTIN '125' [Suspect]
     Indication: EAR INFECTION
     Dosage: 5 ML
     Route: 048
     Dates: start: 20110809, end: 20110814

REACTIONS (8)
  - OEDEMA [None]
  - ARTHRALGIA [None]
  - URTICARIA [None]
  - PYREXIA [None]
  - RASH MACULO-PAPULAR [None]
  - PURPURA [None]
  - HYPOPHAGIA [None]
  - CONTUSION [None]
